FAERS Safety Report 9254456 (Version 1)
Quarter: 2013Q2

REPORT INFORMATION
  Report Type: Spontaneous
  Country: US (occurrence: None)
  Receive Date: 20130422
  Receipt Date: 20130422
  Transmission Date: 20140414
  Serious: Yes (Other)
  Sender: FDA-Public Use
  Company Number: 1304-509

PATIENT
  Sex: Female
  Weight: 62.14 kg

DRUGS (1)
  1. EYLEA (AFLIBERCEPT) (INJECTION) (AFLIBERCEPT) [Suspect]
     Indication: AGE-RELATED MACULAR DEGENERATION
     Dosage: INTAVITREAL
     Dates: start: 20120918

REACTIONS (2)
  - Atrial fibrillation [None]
  - Drug ineffective [None]
